FAERS Safety Report 22592070 (Version 1)
Quarter: 2023Q2

REPORT INFORMATION
  Report Type: Spontaneous
  Country: US (occurrence: US)
  Receive Date: 20230612
  Receipt Date: 20230612
  Transmission Date: 20230721
  Serious: Yes (Other)
  Sender: FDA-Public Use
  Company Number: US-ALEMBIC PHARMACUETICALS LIMITED-2023SCAL000307

PATIENT

DRUGS (1)
  1. METRONIDAZOLE [Suspect]
     Active Substance: METRONIDAZOLE
     Indication: Product used for unknown indication
     Dosage: UNK
     Route: 065

REACTIONS (11)
  - Neurotoxicity [Recovered/Resolved]
  - Cerebellar syndrome [Recovered/Resolved]
  - Dysmetria [Recovered/Resolved]
  - Dysdiadochokinesis [Recovered/Resolved]
  - Vertigo [Unknown]
  - Dysarthria [Unknown]
  - Gait disturbance [Recovered/Resolved]
  - Paraesthesia [Recovered/Resolved]
  - Disorientation [Recovered/Resolved]
  - Cerebellar ataxia [Recovered/Resolved]
  - Dysstasia [Recovered/Resolved]
